FAERS Safety Report 10334042 (Version 1)
Quarter: 2014Q3

REPORT INFORMATION
  Report Type: Report from Study
  Country: GB (occurrence: None)
  Receive Date: 20140721
  Receipt Date: 20140721
  Transmission Date: 20150326
  Serious: Yes (Death, Hospitalization)
  Sender: FDA-Public Use
  Company Number: AMAG201400263

PATIENT

DRUGS (1)
  1. RIENSO [Suspect]
     Active Substance: FERUMOXYTOL
     Indication: IMAGING PROCEDURE
     Route: 042
     Dates: start: 20140422, end: 20140422

REACTIONS (2)
  - Disease progression [None]
  - Aortic aneurysm rupture [None]

NARRATIVE: CASE EVENT DATE: 20140630
